FAERS Safety Report 24694811 (Version 1)
Quarter: 2024Q4

REPORT INFORMATION
  Report Type: Spontaneous
  Country: CN (occurrence: CN)
  Receive Date: 20241204
  Receipt Date: 20241204
  Transmission Date: 20250115
  Serious: Yes (Other)
  Sender: GLAND PHARMA LTD
  Company Number: CN-GLANDPHARMA-CN-2024GLNLIT01126

PATIENT
  Age: 64 Year
  Sex: Female

DRUGS (7)
  1. OXALIPLATIN [Suspect]
     Active Substance: OXALIPLATIN
     Indication: Adenocarcinoma gastric
     Dosage: DAY 1
     Route: 065
     Dates: start: 20211022
  2. OXALIPLATIN [Suspect]
     Active Substance: OXALIPLATIN
     Dosage: SECOND CYCLE
     Route: 065
     Dates: start: 20211112
  3. SINTILIMAB [Suspect]
     Active Substance: SINTILIMAB
     Indication: Adenocarcinoma gastric
     Dosage: DAY 1
     Route: 065
     Dates: start: 20211022
  4. SINTILIMAB [Suspect]
     Active Substance: SINTILIMAB
     Dosage: SECOND CYCLE
     Route: 065
     Dates: start: 20211112
  5. GIMERACIL\OTERACIL\TEGAFUR [Suspect]
     Active Substance: GIMERACIL\OTERACIL POTASSIUM\TEGAFUR
     Indication: Gastric cancer
     Route: 065
     Dates: start: 20211022
  6. GIMERACIL\OTERACIL\TEGAFUR [Suspect]
     Active Substance: GIMERACIL\OTERACIL POTASSIUM\TEGAFUR
     Dosage: SECOND CYCLE
     Route: 065
     Dates: start: 20211112
  7. PREDNISONE [Concomitant]
     Active Substance: PREDNISONE
     Indication: Product used for unknown indication
     Dosage: QD
     Route: 065

REACTIONS (2)
  - Immune-mediated myocarditis [Recovering/Resolving]
  - Product use in unapproved indication [Unknown]
